FAERS Safety Report 13596517 (Version 2)
Quarter: 2017Q3

REPORT INFORMATION
  Report Type: Spontaneous
  Country: DE (occurrence: DE)
  Receive Date: 20170531
  Receipt Date: 20170712
  Transmission Date: 20171127
  Serious: Yes (Hospitalization)
  Sender: FDA-Public Use
  Company Number: PHHY2017DE078591

PATIENT
  Age: 77 Year
  Sex: Female
  Weight: 74 kg

DRUGS (5)
  1. ENTRESTO [Suspect]
     Active Substance: SACUBITRIL\VALSARTAN
     Indication: CARDIAC FAILURE
     Dosage: 2 DF, QD
     Route: 048
     Dates: start: 201610
  2. METFORMIN [Concomitant]
     Active Substance: METFORMIN HYDROCHLORIDE
     Dosage: 1 DF, BID
     Route: 065
  3. SIMVASTATIN. [Concomitant]
     Active Substance: SIMVASTATIN
     Indication: HYPERLIPIDAEMIA
     Dosage: 1 DF, QD
     Route: 065
  4. SIMVASTATIN HEXAL [Concomitant]
     Active Substance: SIMVASTATIN
     Indication: PRODUCT USED FOR UNKNOWN INDICATION
     Dosage: 1 DF, QD
     Route: 065
  5. METFORMIN [Concomitant]
     Active Substance: METFORMIN HYDROCHLORIDE
     Indication: PRODUCT USED FOR UNKNOWN INDICATION
     Dosage: 1 DF, QD
     Route: 065

REACTIONS (36)
  - Obesity [Unknown]
  - Hypertension [Unknown]
  - Glycosylated haemoglobin increased [Unknown]
  - Blood cholesterol increased [Unknown]
  - Gamma-glutamyltransferase increased [Unknown]
  - Urine leukocyte esterase positive [Unknown]
  - Hypoaesthesia [Unknown]
  - Arteriosclerosis [Unknown]
  - Dizziness [Recovering/Resolving]
  - Restless legs syndrome [Unknown]
  - Tinnitus [Unknown]
  - Vitamin D deficiency [Unknown]
  - Low density lipoprotein increased [Unknown]
  - C-reactive protein increased [Unknown]
  - Cerebellar infarction [Unknown]
  - Upper motor neurone lesion [Unknown]
  - Hyperlipidaemia [Unknown]
  - Glomerular filtration rate decreased [Unknown]
  - Dysmetria [Unknown]
  - Vitamin B12 deficiency [Unknown]
  - Paranasal sinus discomfort [Unknown]
  - Atrophy [Unknown]
  - Gait disturbance [Unknown]
  - Coordination abnormal [Unknown]
  - Vertigo positional [Unknown]
  - Dizziness postural [Recovering/Resolving]
  - Blood alkaline phosphatase increased [Unknown]
  - Urinary tract infection [Unknown]
  - Cerebral disorder [Unknown]
  - Cerebellar syndrome [Unknown]
  - Nervous system disorder [Unknown]
  - Hypotension [Unknown]
  - Nystagmus [Unknown]
  - Insomnia [Unknown]
  - Nitrite urine present [Unknown]
  - Romberg test positive [Unknown]

NARRATIVE: CASE EVENT DATE: 201704
